FAERS Safety Report 14983722 (Version 1)
Quarter: 2018Q2

REPORT INFORMATION
  Report Type: Spontaneous
  Country: US (occurrence: US)
  Receive Date: 20180517
  Receipt Date: 20180517
  Transmission Date: 20180711
  Serious: No
  Sender: FDA-Public Use
  Company Number: None

PATIENT
  Age: 54 Year
  Sex: Female
  Weight: 61.9 kg

DRUGS (1)
  1. FERRIC CARBOXYMALTOSE [Suspect]
     Active Substance: FERRIC CARBOXYMALTOSE
     Indication: IRON DEFICIENCY ANAEMIA
     Dosage: OTHER FREQUENCY:WEEKLY FOR 2 DOSES;?
     Route: 042
     Dates: start: 20170718, end: 20180516

REACTIONS (2)
  - Dizziness [None]
  - Infusion related reaction [None]

NARRATIVE: CASE EVENT DATE: 20180516
